FAERS Safety Report 17528754 (Version 2)
Quarter: 2020Q2

REPORT INFORMATION
  Report Type: Spontaneous
  Country: DE (occurrence: DE)
  Receive Date: 20200311
  Receipt Date: 20200421
  Transmission Date: 20200713
  Serious: Yes (Other)
  Sender: FDA-Public Use
  Company Number: DE-JNJFOC-20200304640

PATIENT
  Age: 53 Year
  Sex: Female

DRUGS (4)
  1. FOSTER                             /00500401/ [Concomitant]
     Active Substance: PIROXICAM
     Indication: BRONCHIAL HYPERREACTIVITY
     Dosage: 100/6 G, (1-0-1)
  2. L-THYROXINE                        /00068001/ [Concomitant]
     Active Substance: LEVOTHYROXINE
     Indication: AUTOIMMUNE THYROIDITIS
     Dosage: 1-0-0
  3. L-THYROXINE                        /00068001/ [Concomitant]
     Active Substance: LEVOTHYROXINE
     Indication: HYPOTHYROIDISM
  4. SIMPONI [Suspect]
     Active Substance: GOLIMUMAB
     Indication: PSORIATIC ARTHROPATHY
     Route: 058
     Dates: end: 201905

REACTIONS (2)
  - Breast cancer [Unknown]
  - Proctitis ulcerative [Not Recovered/Not Resolved]

NARRATIVE: CASE EVENT DATE: 201906
